FAERS Safety Report 11819517 (Version 2)
Quarter: 2016Q1

REPORT INFORMATION
  Report Type: Spontaneous
  Country: US (occurrence: US)
  Receive Date: 20151210
  Receipt Date: 20160106
  Transmission Date: 20160525
  Serious: No
  Sender: FDA-Public Use
  Company Number: US-JNJFOC-20151115329

PATIENT
  Age: 35 Year
  Sex: Male
  Weight: 97.52 kg

DRUGS (1)
  1. STELARA [Suspect]
     Active Substance: USTEKINUMAB
     Indication: PSORIATIC ARTHROPATHY
     Route: 058
     Dates: start: 20150206

REACTIONS (8)
  - Drug effect decreased [Unknown]
  - Syringe issue [Unknown]
  - Pain [Not Recovered/Not Resolved]
  - Arthritis [Recovered/Resolved]
  - Product packaging issue [Unknown]
  - Inappropriate schedule of drug administration [Unknown]
  - Cyst [Recovered/Resolved]
  - Drug dose omission [Unknown]

NARRATIVE: CASE EVENT DATE: 20151113
